FAERS Safety Report 7897727-6 (Version None)
Quarter: 2011Q4

REPORT INFORMATION
  Report Type: 
  Country: None (occurrence: None)
  Receive Date: 20111107
  Receipt Date: 20111103
  Transmission Date: 20120403
  Serious: Yes (Other)
  Sender: FDA-Public Use
  Company Number: US-PFIZER INC-2011269782

PATIENT
  Sex: Male
  Weight: 67.6 kg

DRUGS (3)
  1. LIPITOR [Suspect]
     Indication: BLOOD CHOLESTEROL INCREASED
     Dosage: UNK
     Route: 048
     Dates: start: 20100901
  2. LIPITOR [Suspect]
     Dosage: UNK
     Dates: start: 20110811
  3. LIPITOR [Suspect]
     Dosage: 40 MG, 1X/DAY
     Dates: end: 20111103

REACTIONS (1)
  - MUSCLE RUPTURE [None]
